FAERS Safety Report 9248279 (Version 1)
Quarter: 2013Q2

REPORT INFORMATION
  Report Type: Spontaneous
  Country: PH (occurrence: PH)
  Receive Date: 20130423
  Receipt Date: 20130423
  Transmission Date: 20140414
  Serious: Yes (Hospitalization)
  Sender: FDA-Public Use
  Company Number: PH-OTSUKA-JP-2013-10970

PATIENT
  Age: 58 Year
  Sex: Male
  Weight: 55 kg

DRUGS (2)
  1. PLETAAL [Suspect]
     Dosage: 50 MG MILLIGRAM(S), BID
     Route: 048
     Dates: start: 20130121, end: 20130410
  2. ASPILETS [Concomitant]
     Dosage: 80 MG MILLIGRAM(S), DAILY DOSE
     Route: 048
     Dates: start: 201201, end: 20130410

REACTIONS (1)
  - Upper gastrointestinal haemorrhage [Unknown]
